FAERS Safety Report 9406375 (Version 1)
Quarter: 2013Q3

REPORT INFORMATION
  Report Type: Spontaneous
  Country: VE (occurrence: VE)
  Receive Date: 20130718
  Receipt Date: 20130718
  Transmission Date: 20140515
  Serious: Yes (Disabling)
  Sender: FDA-Public Use
  Company Number: VE-ROCHE-1249073

PATIENT
  Age: 69 Year
  Sex: Female

DRUGS (1)
  1. GANCICLOVIR [Suspect]
     Indication: ENCEPHALITIS CYTOMEGALOVIRUS
     Route: 042
     Dates: start: 20130705, end: 20130715

REACTIONS (1)
  - Blindness [Not Recovered/Not Resolved]
